FAERS Safety Report 10219698 (Version 2)
Quarter: 2014Q2

REPORT INFORMATION
  Report Type: Report from Study
  Country: UY (occurrence: UY)
  Receive Date: 20140605
  Receipt Date: 20140605
  Transmission Date: 20141212
  Serious: Yes (Death)
  Sender: FDA-Public Use
  Company Number: UY-ROCHE-1269085

PATIENT
  Age: 67 Year
  Sex: Female

DRUGS (2)
  1. XELODA [Suspect]
     Indication: HEPATIC CANCER
     Dosage: 1500MG AM + 1500MG PM
     Route: 048
     Dates: start: 20130805
  2. XELODA [Suspect]
     Indication: GALLBLADDER CANCER

REACTIONS (4)
  - Death [Fatal]
  - Oral disorder [Not Recovered/Not Resolved]
  - Lip pain [Not Recovered/Not Resolved]
  - Dizziness [Not Recovered/Not Resolved]
